FAERS Safety Report 9422399 (Version 4)
Quarter: 2013Q3

REPORT INFORMATION
  Report Type: Report from Study
  Country: US (occurrence: US)
  Receive Date: 20130726
  Receipt Date: 20130903
  Transmission Date: 20140515
  Serious: Yes (Other)
  Sender: FDA-Public Use
  Company Number: US-BAYER-2013-077721

PATIENT
  Age: 65 Year
  Sex: Female

DRUGS (4)
  1. STIVARGA [Suspect]
     Indication: COLON CANCER
     Dosage: 120 MG, QD (40 MG,  TABLETS, DAILY)
     Route: 048
     Dates: start: 20130617, end: 20130701
  2. STIVARGA [Suspect]
     Indication: COLON CANCER
     Dosage: 120 MG, QD (40 MG,3 TABLETS, DAILY)
     Route: 048
     Dates: start: 20130617, end: 20130701
  3. STIVARGA [Suspect]
     Indication: COLON CANCER
     Dosage: 120 MG (40 MG, 3 TABLETS), QD
     Route: 048
     Dates: start: 20130708
  4. STIVARGA [Suspect]
     Indication: COLON CANCER
     Dosage: 80 MG, QD (2 TABLETS DAILY)
     Route: 048

REACTIONS (13)
  - Skin fissures [None]
  - Pyrexia [Recovered/Resolved]
  - Fatigue [Not Recovered/Not Resolved]
  - Pruritus [None]
  - Hyperkeratosis [Recovered/Resolved]
  - Cough [Not Recovered/Not Resolved]
  - Rash [Not Recovered/Not Resolved]
  - Rash erythematous [None]
  - Blister [None]
  - Skin exfoliation [None]
  - Erythema [None]
  - Skin exfoliation [None]
  - Palmar-plantar erythrodysaesthesia syndrome [None]
